FAERS Safety Report 6641754-3 (Version None)
Quarter: 2010Q1

REPORT INFORMATION
  Report Type: 
  Country: None (occurrence: None)
  Receive Date: 20100319
  Receipt Date: 20100304
  Transmission Date: 20100710
  Serious: No
  Sender: FDA-Public Use
  Company Number: DK-DENTSPLY-2007-0070-EUR

PATIENT
  Sex: Female

DRUGS (1)
  1. XYLOPLYIN [Suspect]
     Route: 053
     Dates: start: 20040619, end: 20040619

REACTIONS (3)
  - HYPOAESTHESIA ORAL [None]
  - NERVE INJURY [None]
  - ORAL DYSAESTHESIA [None]
